FAERS Safety Report 10656928 (Version 2)
Quarter: 2015Q1

REPORT INFORMATION
  Report Type: Spontaneous
  Country: JP (occurrence: None)
  Receive Date: 20141215
  Receipt Date: 20150209
  Transmission Date: 20150720
  Serious: Yes (Death)
  Sender: FDA-Public Use
  Company Number: A201409474

PATIENT
  Age: 76 Year
  Sex: Female

DRUGS (3)
  1. JZOLOFT (SERTRALINE HYDROCHLORIDE) TABLET; UNKNOWN [Concomitant]
  2. PAROXETINE HYDROCHLORIDE (PAROXETINE HYDROCHLORIDE) TABLET [Suspect]
     Active Substance: PAROXETINE HYDROCHLORIDE
     Route: 048
  3. DOPASTON (LEVODOPA) UNKNOWN; UNKNOWN [Concomitant]

REACTIONS (5)
  - Hyperammonaemia [None]
  - Multi-organ failure [None]
  - Altered state of consciousness [None]
  - Hepatic function abnormal [None]
  - Condition aggravated [None]

NARRATIVE: CASE EVENT DATE: 201408
